FAERS Safety Report 21324348 (Version 4)
Quarter: 2023Q1

REPORT INFORMATION
  Report Type: Spontaneous
  Country: US (occurrence: US)
  Receive Date: 20220912
  Receipt Date: 20230323
  Transmission Date: 20230417
  Serious: No
  Sender: FDA-Public Use
  Company Number: US-LUPIN PHARMACEUTICALS INC.-2022-10923

PATIENT

DRUGS (2)
  1. GAVILAX [Suspect]
     Active Substance: POLYETHYLENE GLYCOL 3350
     Indication: Constipation
     Dosage: UNK, BID (3 TABLESPOONS, 17 GM/SCOOPFUL)
     Route: 048
  2. GAVILAX [Suspect]
     Active Substance: POLYETHYLENE GLYCOL 3350
     Dosage: UNK, BID (3 TABLESPOONS, 17 GM/SCOOPFUL)
     Route: 048
     Dates: start: 20220811

REACTIONS (6)
  - Product packaging issue [Unknown]
  - Product odour abnormal [Unknown]
  - Poor quality product administered [Unknown]
  - Product taste abnormal [Unknown]
  - Product quality issue [Unknown]
  - No adverse event [Unknown]
